FAERS Safety Report 13797566 (Version 1)
Quarter: 2017Q3

REPORT INFORMATION
  Report Type: Report from Study
  Country: None (occurrence: US)
  Receive Date: 20170727
  Receipt Date: 20170727
  Transmission Date: 20171127
  Serious: Yes (Hospitalization, Other)
  Sender: FDA-Public Use
  Company Number: US-ABBVIE-16K-163-1624153-00

PATIENT
  Age: 72 Year
  Sex: Female
  Weight: 79.37 kg

DRUGS (12)
  1. GABAPENTIN. [Concomitant]
     Active Substance: GABAPENTIN
     Indication: NEUROPATHY PERIPHERAL
  2. ALPRAZOLAM. [Concomitant]
     Active Substance: ALPRAZOLAM
     Indication: SLEEP DISORDER
  3. COMBIGAN [Concomitant]
     Active Substance: BRIMONIDINE TARTRATE\TIMOLOL MALEATE
     Indication: PRODUCT USED FOR UNKNOWN INDICATION
  4. LISINOPRIL. [Concomitant]
     Active Substance: LISINOPRIL
     Indication: PROPHYLAXIS
  5. HUMIRA [Suspect]
     Active Substance: ADALIMUMAB
     Route: 058
     Dates: start: 201705, end: 201707
  6. DUREZOL [Concomitant]
     Active Substance: DIFLUPREDNATE
     Indication: PRODUCT USED FOR UNKNOWN INDICATION
  7. HUMIRA [Suspect]
     Active Substance: ADALIMUMAB
     Indication: UVEITIS
     Route: 058
     Dates: start: 2016, end: 20170419
  8. HYDROCODONE/ACETAMINOPHEN [Concomitant]
     Active Substance: ACETAMINOPHEN\HYDROCODONE
     Indication: PAIN
  9. HUMIRA [Suspect]
     Active Substance: ADALIMUMAB
     Indication: RHEUMATOID ARTHRITIS
     Route: 058
     Dates: start: 201601, end: 20160504
  10. HUMIRA [Suspect]
     Active Substance: ADALIMUMAB
     Route: 058
     Dates: start: 20170719
  11. LISINOPRIL. [Concomitant]
     Active Substance: LISINOPRIL
     Indication: INTRAOCULAR PRESSURE INCREASED
  12. LEVOTHYROXINE. [Concomitant]
     Active Substance: LEVOTHYROXINE
     Indication: HYPOTHYROIDISM

REACTIONS (23)
  - Ocular hyperaemia [Recovered/Resolved]
  - Drug effect incomplete [Unknown]
  - Eye inflammation [Not Recovered/Not Resolved]
  - Pruritus [Unknown]
  - Eye swelling [Not Recovered/Not Resolved]
  - Herpes zoster [Recovered/Resolved]
  - Upper respiratory tract infection [Recovered/Resolved]
  - Eye pain [Not Recovered/Not Resolved]
  - Upper respiratory tract infection [Recovered/Resolved]
  - Eye infection viral [Recovered/Resolved]
  - Precancerous skin lesion [Recovered/Resolved]
  - Secretion discharge [Recovered/Resolved]
  - Eye pruritus [Recovered/Resolved]
  - Pain [Not Recovered/Not Resolved]
  - Disease susceptibility [Unknown]
  - Chest discomfort [Unknown]
  - Herpes zoster [Recovered/Resolved]
  - Drug ineffective [Recovering/Resolving]
  - Cough [Recovered/Resolved]
  - Visual impairment [Not Recovered/Not Resolved]
  - Dermatitis [Recovering/Resolving]
  - Immunodeficiency [Not Recovered/Not Resolved]
  - Hyperkeratosis [Not Recovered/Not Resolved]

NARRATIVE: CASE EVENT DATE: 2016
